FAERS Safety Report 9006672 (Version 1)
Quarter: 2013Q1

REPORT INFORMATION
  Report Type: Spontaneous
  Country: US (occurrence: US)
  Receive Date: 20130110
  Receipt Date: 20130110
  Transmission Date: 20140127
  Serious: Yes (Death)
  Sender: FDA-Public Use
  Company Number: US-PFIZER INC-2013006656

PATIENT
  Age: 46 Year
  Sex: Female

DRUGS (5)
  1. GABAPENTIN [Suspect]
  2. ACETAMINOPHEN W/OXYCODONE [Suspect]
  3. CARISOPRODOL [Suspect]
  4. ACETYLSALICYLIC ACID [Suspect]
  5. ACETAMINOPHEN W/HYDROCODONE BITARTRATE [Suspect]

REACTIONS (4)
  - Completed suicide [Fatal]
  - Cardiac arrest [Fatal]
  - Respiratory arrest [Fatal]
  - Intentional drug misuse [None]
